FAERS Safety Report 11177065 (Version 1)
Quarter: 2015Q2

REPORT INFORMATION
  Report Type: Spontaneous
  Country: US (occurrence: None)
  Receive Date: 20150515
  Receipt Date: 20150515
  Transmission Date: 20150821
  Serious: Yes (Hospitalization, Other)
  Sender: FDA-Public Use
  Company Number: 2015006017

PATIENT
  Sex: Female

DRUGS (10)
  1. CIMZIA [Suspect]
     Active Substance: CERTOLIZUMAB PEGOL
     Indication: RHEUMATOID ARTHRITIS
     Route: 058
     Dates: start: 20130621, end: 20130806
  2. PLAVIX [Concomitant]
     Active Substance: CLOPIDOGREL BISULFATE
  3. PREDNISONE (PREDNISONE ACETATE) [Concomitant]
  4. LOSARTAN (LOSARTAN) [Concomitant]
     Active Substance: LOSARTAN
  5. ATENOLOL (ATENOLOL) [Concomitant]
     Active Substance: ATENOLOL
  6. FOLIC ACID (FOLIC ACID) [Concomitant]
     Active Substance: FOLIC ACID
  7. PRILOSEC (OMEPRAZOLE) [Concomitant]
     Active Substance: OMEPRAZOLE MAGNESIUM
  8. ASPIRIN (ACETYLSALICYLIC ACID) [Concomitant]
     Active Substance: ASPIRIN
  9. ISOSORBIDE MONONITRATE (ISOSORBIDE MONONITRATE) [Concomitant]
     Active Substance: ISOSORBIDE MONONITRATE
  10. NITROFURANTOIN (NITROFURANTOIN) [Concomitant]
     Active Substance: NITROFURANTOIN

REACTIONS (1)
  - Myocardial infarction [None]

NARRATIVE: CASE EVENT DATE: 20130623
